FAERS Safety Report 6983256-0 (Version None)
Quarter: 2010Q3

REPORT INFORMATION
  Report Type: 
  Country: None (occurrence: None)
  Receive Date: 20100914
  Receipt Date: 20100716
  Transmission Date: 20110219
  Serious: No
  Sender: FDA-Public Use
  Company Number: US-PFIZER INC-2010089610

PATIENT

DRUGS (4)
  1. LYRICA [Suspect]
     Dosage: UNKNOWN
  2. PROMETHAZINE HYDROCHLORIDE [Suspect]
     Dosage: UNKNOWN
  3. NORCO [Suspect]
     Dosage: UNKNOWN
  4. ROBAXIN [Suspect]
     Dosage: UNKNOWN

REACTIONS (2)
  - BLISTER [None]
  - ORAL DISCOMFORT [None]
